FAERS Safety Report 5329478-6 (Version None)
Quarter: 2007Q1

REPORT INFORMATION
  Report Type: 
  Country: None (occurrence: None)
  Receive Date: 20070221
  Receipt Date: 20060526
  Transmission Date: 20070707
  Serious: Yes (Other)
  Sender: FDA-Public Use
  Company Number: BDI-008288

PATIENT
  Age: 45 Year
  Sex: Female
  Weight: 82.7 kg

DRUGS (2)
  1. ISOVUE-M 200 [Suspect]
     Indication: NECK PAIN
     Dosage: 12 ML ONCE IT
     Route: 037
     Dates: start: 20060508, end: 20060508
  2. ISOVUE-M 200 [Suspect]
     Indication: SPINAL MYELOGRAM
     Dosage: 12 ML ONCE IT
     Route: 037
     Dates: start: 20060508, end: 20060508

REACTIONS (3)
  - HEADACHE [None]
  - NAUSEA [None]
  - VOMITING [None]
